FAERS Safety Report 9217060 (Version 1)
Quarter: 2013Q2

REPORT INFORMATION
  Report Type: Spontaneous
  Country: US (occurrence: None)
  Receive Date: 20130404
  Receipt Date: 20130404
  Transmission Date: 20140414
  Serious: Yes (Hospitalization)
  Sender: FDA-Public Use
  Company Number: KAD201303-000441

PATIENT
  Age: 28 Year
  Sex: Female

DRUGS (3)
  1. RIBAVIRIN (RIBAVIRIN) [Suspect]
     Indication: HEPATITIS C
     Route: 048
     Dates: start: 20130103
  2. INTERFERON ALFA-2A [Suspect]
     Indication: HEPATITIS C
     Route: 058
     Dates: start: 20130103
  3. GSK2336805 (GSK2336805) [Suspect]
     Indication: HEPATITIS C
     Dosage: BLINDED DOSE, ORAL
     Dates: start: 20130103

REACTIONS (2)
  - Haemorrhoids [None]
  - Haemorrhoids [None]
